FAERS Safety Report 17967838 (Version 1)
Quarter: 2020Q3

REPORT INFORMATION
  Report Type: Spontaneous
  Country: US (occurrence: US)
  Receive Date: 20200701
  Receipt Date: 20200701
  Transmission Date: 20201103
  Serious: No
  Sender: FDA-Public Use
  Company Number: US-HORIZON-KRY-0882-2020

PATIENT
  Age: 75 Year
  Sex: Female

DRUGS (15)
  1. METAXALONE. [Concomitant]
     Active Substance: METAXALONE
  2. ASPIRIN. [Concomitant]
     Active Substance: ASPIRIN
  3. KRYSTEXXA [Suspect]
     Active Substance: PEGLOTICASE
     Indication: GOUTY TOPHUS
     Dosage: IV PUSH EVERY 2 WEEKS
     Route: 042
     Dates: start: 20200618
  4. HYDROCODONE [Concomitant]
     Active Substance: HYDROCODONE
  5. GABAPENTIN. [Concomitant]
     Active Substance: GABAPENTIN
  6. PROAIR HFA [Concomitant]
     Active Substance: ALBUTEROL SULFATE
  7. MYCARDIS [Concomitant]
  8. CLONIDINE. [Concomitant]
     Active Substance: CLONIDINE
  9. MESTINON [Concomitant]
     Active Substance: PYRIDOSTIGMINE BROMIDE
  10. TOPROL XL [Concomitant]
     Active Substance: METOPROLOL SUCCINATE
  11. RABEPRAZOLE [Concomitant]
     Active Substance: RABEPRAZOLE
  12. FLUTICASONE SPRAY [Concomitant]
     Active Substance: FLUTICASONE
  13. METHIMAZOLE. [Concomitant]
     Active Substance: METHIMAZOLE
  14. TORSEMIDE. [Concomitant]
     Active Substance: TORSEMIDE
  15. NITROSTAT [Concomitant]
     Active Substance: NITROGLYCERIN

REACTIONS (7)
  - Back pain [Recovered/Resolved]
  - Pain in extremity [Recovered/Resolved]
  - Chest pain [Recovered/Resolved]
  - Nausea [Recovered/Resolved]
  - Ear discomfort [Recovered/Resolved]
  - Decreased appetite [Recovered/Resolved]
  - Fatigue [Recovered/Resolved]

NARRATIVE: CASE EVENT DATE: 20200618
